FAERS Safety Report 9130924 (Version 3)
Quarter: 2013Q1

REPORT INFORMATION
  Report Type: Spontaneous
  Country: US (occurrence: US)
  Receive Date: 20130301
  Receipt Date: 20130319
  Transmission Date: 20140127
  Serious: No
  Sender: FDA-Public Use
  Company Number: US-VERTEX PHARMACEUTICALS INC.-2013-002847

PATIENT
  Age: 58 None
  Sex: Female
  Weight: 78 kg

DRUGS (3)
  1. INCIVEK [Suspect]
     Indication: HEPATITIS C
     Dosage: 750 MG, TID
     Route: 048
     Dates: start: 20130225
  2. PEGASYS [Suspect]
     Indication: HEPATITIS C
     Dosage: 180 ?G, QW
     Route: 058
     Dates: start: 20130225
  3. RIBAVIRIN [Suspect]
     Indication: HEPATITIS C
     Dosage: 3 TABS IN AM, 2 TABS IN PM
     Route: 048
     Dates: start: 20130225

REACTIONS (9)
  - Depressed mood [Recovered/Resolved]
  - Tremor [Recovered/Resolved]
  - Chills [Recovered/Resolved]
  - Epistaxis [Not Recovered/Not Resolved]
  - Fatigue [Recovered/Resolved]
  - Frequent bowel movements [Not Recovered/Not Resolved]
  - Pruritus [Recovered/Resolved]
  - Proctalgia [Not Recovered/Not Resolved]
  - Anorectal discomfort [Not Recovered/Not Resolved]
